FAERS Safety Report 4653858-5 (Version None)
Quarter: 2005Q2

REPORT INFORMATION
  Report Type: 
  Country: None (occurrence: None)
  Receive Date: 20050504
  Receipt Date: 20050427
  Transmission Date: 20051028
  Serious: Yes (Other)
  Sender: FDA-Public Use
  Company Number: USA-2005-0020013

PATIENT
  Sex: Female

DRUGS (10)
  1. OXYCONTIN [Suspect]
     Indication: PAIN
     Dosage: 50 MG
  2. MOBIC [Concomitant]
  3. PRILOSEC [Concomitant]
  4. GABAPENTIN [Concomitant]
  5. NORTRIPTYLINE HCL [Concomitant]
  6. SOMA (CARISOPROLOL) [Concomitant]
  7. BACLOFEN [Concomitant]
  8. LASIX [Concomitant]
  9. TOPAMAX [Concomitant]
  10. SENOKOT [Concomitant]

REACTIONS (3)
  - CHOLELITHIASIS [None]
  - HYPERLIPIDAEMIA [None]
  - PANCREATITIS [None]
